FAERS Safety Report 12280298 (Version 1)
Quarter: 2016Q2

REPORT INFORMATION
  Report Type: Spontaneous
  Country: US (occurrence: US)
  Receive Date: 20160419
  Receipt Date: 20160419
  Transmission Date: 20160815
  Serious: Yes (Other)
  Sender: FDA-Public Use
  Company Number: US-BEH-2016061235

PATIENT
  Sex: Female
  Weight: 99 kg

DRUGS (24)
  1. DIPHENHYDRAMINE. [Concomitant]
     Active Substance: DIPHENHYDRAMINE
  2. ALBUTEROL. [Concomitant]
     Active Substance: ALBUTEROL
  3. CLARITIN [Concomitant]
     Active Substance: LORATADINE
  4. FLEXERIL [Concomitant]
     Active Substance: CYCLOBENZAPRINE HYDROCHLORIDE
  5. PROAIR HFA [Concomitant]
     Active Substance: ALBUTEROL SULFATE
  6. VITAMIN D3 [Concomitant]
     Active Substance: CHOLECALCIFEROL
  7. HIZENTRA [Suspect]
     Active Substance: HUMAN IMMUNOGLOBULIN G
     Indication: IMMUNODEFICIENCY COMMON VARIABLE
     Route: 058
     Dates: start: 20120912
  8. PREDNISONE. [Concomitant]
     Active Substance: PREDNISONE
  9. SODIUM CHLORIDE. [Concomitant]
     Active Substance: SODIUM CHLORIDE
  10. PLAQUENIL [Concomitant]
     Active Substance: HYDROXYCHLOROQUINE SULFATE
  11. AVAPRO [Concomitant]
     Active Substance: IRBESARTAN
  12. NEXIUM [Concomitant]
     Active Substance: ESOMEPRAZOLE MAGNESIUM
  13. CEFDINIR. [Concomitant]
     Active Substance: CEFDINIR
  14. DOXYCYCLINE. [Concomitant]
     Active Substance: DOXYCYCLINE
  15. COENZYME Q10 [Concomitant]
     Active Substance: UBIDECARENONE
  16. METROGEL [Concomitant]
     Active Substance: METRONIDAZOLE
  17. SALINE SOLUTION [Concomitant]
     Active Substance: SODIUM CHLORIDE
  18. SYMBICORT [Concomitant]
     Active Substance: BUDESONIDE\FORMOTEROL FUMARATE DIHYDRATE
  19. PENICILLIN [Concomitant]
     Active Substance: PENICILLIN
  20. ACETAMINOPHEN. [Concomitant]
     Active Substance: ACETAMINOPHEN
  21. PRAVACHOL [Concomitant]
     Active Substance: PRAVASTATIN SODIUM
  22. FLONASE [Concomitant]
     Active Substance: FLUTICASONE PROPIONATE
  23. ZETIA [Concomitant]
     Active Substance: EZETIMIBE
  24. EPINEPHRINE. [Concomitant]
     Active Substance: EPINEPHRINE

REACTIONS (1)
  - Bronchitis [Unknown]
